FAERS Safety Report 8265780-6 (Version None)
Quarter: 2012Q2

REPORT INFORMATION
  Report Type: 
  Country: None (occurrence: None)
  Receive Date: 20120406
  Receipt Date: 20120402
  Transmission Date: 20120825
  Serious: Yes (Other)
  Sender: FDA-Public Use
  Company Number: PHEH2012US007357

PATIENT
  Sex: Female

DRUGS (1)
  1. GILENYA [Suspect]
     Route: 048

REACTIONS (9)
  - MOBILITY DECREASED [None]
  - SPEECH DISORDER [None]
  - POSTURE ABNORMAL [None]
  - LETHARGY [None]
  - HEADACHE [None]
  - HEART RATE DECREASED [None]
  - GAIT DISTURBANCE [None]
  - MIGRAINE [None]
  - FEELING ABNORMAL [None]
